FAERS Safety Report 6054334-8 (Version None)
Quarter: 2009Q1

REPORT INFORMATION
  Report Type: 
  Country: None (occurrence: None)
  Receive Date: 20090127
  Receipt Date: 20090116
  Transmission Date: 20090719
  Serious: Yes (Hospitalization)
  Sender: FDA-Public Use
  Company Number: JP-PFIZER INC-2008150561

PATIENT
  Sex: Female

DRUGS (6)
  1. LIPITOR [Suspect]
     Dosage: 5 MG, 1X/DAY
     Route: 048
     Dates: start: 20080517, end: 20080922
  2. THYRADIN S [Concomitant]
     Indication: HYPOTHYROIDISM
     Dosage: 1.5 DF, 1X/DAY
     Route: 048
     Dates: start: 20070604
  3. DEPAS [Concomitant]
     Indication: INSOMNIA
     Dosage: 0.5 MG, 1X/DAY
     Route: 048
     Dates: start: 20070611
  4. GASMOTIN [Concomitant]
     Indication: GASTRITIS
     Dosage: 1 DF, 3X/DAY
     Route: 048
     Dates: start: 20080412, end: 20080710
  5. MUCOSTA [Concomitant]
     Indication: GASTRITIS
     Dosage: 1 DF, 3X/DAY
     Route: 048
     Dates: start: 20080318
  6. LOXONIN [Concomitant]
     Indication: PERIARTHRITIS
     Dosage: 1 DF, 3X/DAY
     Route: 048
     Dates: start: 20080318

REACTIONS (1)
  - LIVER DISORDER [None]
